FAERS Safety Report 5210651-2 (Version None)
Quarter: 2007Q1

REPORT INFORMATION
  Report Type: 
  Country: None (occurrence: None)
  Receive Date: 20070117
  Receipt Date: 20070111
  Transmission Date: 20070707
  Serious: Yes (Other)
  Sender: FDA-Public Use
  Company Number: US-JNJFOC-20061102940

PATIENT
  Sex: Female
  Weight: 64 kg

DRUGS (7)
  1. REMICADE [Suspect]
     Route: 042
  2. REMICADE [Suspect]
     Route: 042
  3. REMICADE [Suspect]
     Route: 042
  4. REMICADE [Suspect]
     Indication: COLITIS ULCERATIVE
     Route: 042
  5. IMURAN [Concomitant]
     Indication: COLITIS ULCERATIVE
  6. PREDNISONE TAB [Concomitant]
     Indication: COLITIS ULCERATIVE
  7. PREVACID [Concomitant]

REACTIONS (1)
  - ANOGENITAL WARTS [None]
